FAERS Safety Report 9562054 (Version 1)
Quarter: 2013Q3

REPORT INFORMATION
  Report Type: Spontaneous
  Country: US (occurrence: US)
  Receive Date: 20130927
  Receipt Date: 20130927
  Transmission Date: 20140515
  Serious: Yes (Other)
  Sender: FDA-Public Use
  Company Number: US-RB-058291-13

PATIENT
  Age: 69 Year
  Sex: Male

DRUGS (1)
  1. MUCINEX [Suspect]
     Indication: INCREASED UPPER AIRWAY SECRETION
     Route: 048
     Dates: start: 20130909

REACTIONS (2)
  - Haemoptysis [Not Recovered/Not Resolved]
  - Epistaxis [Not Recovered/Not Resolved]
